FAERS Safety Report 17035767 (Version 1)
Quarter: 2019Q4

REPORT INFORMATION
  Report Type: Spontaneous
  Country: US (occurrence: US)
  Receive Date: 20191115
  Receipt Date: 20191115
  Transmission Date: 20200122
  Serious: Yes (Hospitalization, Other)
  Sender: FDA-Public Use
  Company Number: US-ACCORD-160662

PATIENT
  Age: 69 Year
  Sex: Male

DRUGS (2)
  1. MYCOPHENOLIC ACID. [Suspect]
     Active Substance: MYCOPHENOLIC ACID
     Indication: GLOMERULONEPHRITIS
  2. PREDNISONE. [Suspect]
     Active Substance: PREDNISONE
     Indication: GLOMERULONEPHRITIS

REACTIONS (6)
  - Meningitis cryptococcal [Recovering/Resolving]
  - Cryptococcosis [Recovering/Resolving]
  - Disseminated cryptococcosis [Recovering/Resolving]
  - Cryptococcal cutaneous infection [Recovering/Resolving]
  - Meningitis bacterial [Recovering/Resolving]
  - Pneumonia cryptococcal [Recovering/Resolving]
